FAERS Safety Report 15232722 (Version 5)
Quarter: 2019Q2

REPORT INFORMATION
  Report Type: Report from Study
  Country: JP (occurrence: JP)
  Receive Date: 20180802
  Receipt Date: 20190415
  Transmission Date: 20190711
  Serious: Yes (Hospitalization)
  Sender: FDA-Public Use
  Company Number: JP-EISAI MEDICAL RESEARCH-EC-2018-043570

PATIENT
  Age: 60 Year
  Sex: Male
  Weight: 58 kg

DRUGS (23)
  1. EVEROLIMUS. [Suspect]
     Active Substance: EVEROLIMUS
     Route: 048
     Dates: start: 20180530, end: 20190403
  2. CRESTOR [Concomitant]
     Active Substance: ROSUVASTATIN CALCIUM
  3. RINDERON VG [Concomitant]
     Active Substance: BETAMETHASONE VALERATE\GENTAMICIN SULFATE
  4. ONEALFA [Concomitant]
     Active Substance: ALFACALCIDOL
  5. LENVATINIB [Suspect]
     Active Substance: LENVATINIB
     Indication: RENAL CELL CARCINOMA
     Route: 048
     Dates: start: 20180222, end: 20180524
  6. THYRADIN [Concomitant]
     Active Substance: LEVOTHYROXINE
  7. MIYA-BM [Concomitant]
     Active Substance: CLOSTRIDIUM BUTYRICUM SPORES STRAIN M-55
  8. RANMARK [Concomitant]
     Active Substance: DENOSUMAB
  9. DENOTAS [Concomitant]
     Active Substance: CALCIUM CARBONATE\CHOLECALCIFEROL\MAGNESIUM CARBONATE
  10. METFORMIN HYDROCHLORIDE. [Concomitant]
     Active Substance: METFORMIN HYDROCHLORIDE
  11. SUREPOST [Concomitant]
     Active Substance: REPAGLINIDE
  12. LOPERAMIDE [Concomitant]
     Active Substance: LOPERAMIDE
  13. TRESIBA [Concomitant]
     Active Substance: INSULIN DEGLUDEC
  14. HACHIAZULE [Concomitant]
  15. TRAZENTA [Concomitant]
     Active Substance: LINAGLIPTIN
  16. PHOSRIBBON [Concomitant]
  17. HAEMOLEX [Concomitant]
  18. ACUATIM [Concomitant]
     Active Substance: NADIFLOXACIN
  19. ASPARA POTASSIUM [Concomitant]
     Active Substance: POTASSIUM ASPARTATE
  20. LENVATINIB [Suspect]
     Active Substance: LENVATINIB
     Route: 048
     Dates: start: 20180530, end: 20190403
  21. ADALAT [Concomitant]
     Active Substance: NIFEDIPINE
  22. NEXIUM [Concomitant]
     Active Substance: ESOMEPRAZOLE MAGNESIUM
  23. EVEROLIMUS. [Suspect]
     Active Substance: EVEROLIMUS
     Indication: RENAL CELL CARCINOMA
     Route: 048
     Dates: start: 20180222, end: 20180524

REACTIONS (2)
  - Gastroenteritis [Recovered/Resolved]
  - Diabetes mellitus [Recovering/Resolving]

NARRATIVE: CASE EVENT DATE: 20180731
